FAERS Safety Report 6676567-X (Version None)
Quarter: 2010Q2

REPORT INFORMATION
  Report Type: 
  Country: None (occurrence: None)
  Receive Date: 20100408
  Receipt Date: 20100401
  Transmission Date: 20101027
  Serious: Yes (Other)
  Sender: FDA-Public Use
  Company Number: 20108551

PATIENT
  Sex: Female

DRUGS (1)
  1. LIORESAL [Suspect]
     Indication: MUSCLE SPASTICITY
     Dosage: MCG, DAILY; INTRATHECAL
     Route: 037

REACTIONS (8)
  - ANXIETY [None]
  - CHEST PAIN [None]
  - DRUG LEVEL DECREASED [None]
  - DYSPNOEA [None]
  - HYPERTONIA [None]
  - INSOMNIA [None]
  - PANIC ATTACK [None]
  - THERAPEUTIC RESPONSE DECREASED [None]
